FAERS Safety Report 4547242-2 (Version None)
Quarter: 2005Q1

REPORT INFORMATION
  Report Type: 
  Country: None (occurrence: None)
  Receive Date: 20050105
  Receipt Date: 20041015
  Transmission Date: 20050727
  Serious: Yes (Other)
  Sender: FDA-Public Use
  Company Number: ENT 2004-0190

PATIENT
  Age: 67 Year
  Sex: Male

DRUGS (4)
  1. COMTAN [Suspect]
     Dosage: 800 MG (200 MG, 4 IN 1 D) ORAL
     Route: 048
     Dates: start: 20010601
  2. SINEMET [Concomitant]
  3. SINEMET CR [Concomitant]
  4. PERMAX [Concomitant]

REACTIONS (1)
  - ACUTE MYELOID LEUKAEMIA [None]
